FAERS Safety Report 13052821 (Version 3)
Quarter: 2017Q1

REPORT INFORMATION
  Report Type: Spontaneous
  Country: US (occurrence: US)
  Receive Date: 20161221
  Receipt Date: 20170103
  Transmission Date: 20170428
  Serious: No
  Sender: FDA-Public Use
  Company Number: US-ASTRAZENECA-2016SF34401

PATIENT
  Age: 72 Year
  Sex: Female
  Weight: 49 kg

DRUGS (13)
  1. VITAMIN D3 [Concomitant]
     Active Substance: CHOLECALCIFEROL
     Indication: PRODUCT USED FOR UNKNOWN INDICATION
     Route: 065
  2. FISH OIL OMEGA 3 [Concomitant]
     Indication: CARDIAC DISORDER
     Route: 065
  3. GARLIC. [Concomitant]
     Active Substance: GARLIC
     Indication: CARDIAC DISORDER
     Route: 065
  4. ZYRTEC [Concomitant]
     Active Substance: CETIRIZINE HYDROCHLORIDE
     Indication: MULTIPLE ALLERGIES
     Route: 065
  5. RHINOCORT [Suspect]
     Active Substance: BUDESONIDE
     Indication: MULTIPLE ALLERGIES
     Dosage: 1 SPRAY EACH NOSTRIL ONCE A DAY
     Route: 045
  6. METAMUCIL [Concomitant]
     Active Substance: PLANTAGO SEED
     Indication: NUTRITIONAL SUPPLEMENTATION
     Route: 065
  7. RHINOCORT [Suspect]
     Active Substance: BUDESONIDE
     Indication: PRODUCT USED FOR UNKNOWN INDICATION
     Dosage: 1 SPRAY EACH NOSTRIL ONCE A DAY
     Route: 045
  8. DESOXIMETASONE. [Concomitant]
     Active Substance: DESOXIMETASONE
     Indication: SKIN DISORDER
     Route: 065
  9. NORVASC [Concomitant]
     Active Substance: AMLODIPINE BESYLATE
     Indication: HYPERTENSION
     Route: 065
  10. TIMOLOL. [Concomitant]
     Active Substance: TIMOLOL
     Indication: GLAUCOMA
     Dosage: DOSAGE FORM: UNSPECIFIED EVERY DAY
     Route: 065
  11. LATANOPROST. [Concomitant]
     Active Substance: LATANOPROST
     Indication: GLAUCOMA
     Route: 065
  12. PEPCIDE COMPLETE [Concomitant]
     Indication: DYSPEPSIA
     Route: 065
  13. CALCIUM [Concomitant]
     Active Substance: CALCIUM
     Indication: NUTRITIONAL SUPPLEMENTATION
     Route: 065

REACTIONS (8)
  - Off label use [Recovered/Resolved]
  - Drug hypersensitivity [Recovered/Resolved]
  - Nasal discomfort [Recovered/Resolved]
  - Erythema [Recovered/Resolved]
  - Incorrect dose administered [Recovered/Resolved]
  - Skin discolouration [Recovered/Resolved]
  - Skin disorder [Recovered/Resolved]
  - Liquid product physical issue [Unknown]
